FAERS Safety Report 4491661-X (Version None)
Quarter: 2004Q4

REPORT INFORMATION
  Report Type: 
  Country: None (occurrence: None)
  Receive Date: 20041103
  Receipt Date: 20041001
  Transmission Date: 20050328
  Serious: Yes (Hospitalization)
  Sender: FDA-Public Use
  Company Number: FR-BRISTOL-MYERS SQUIBB COMPANY-12723516

PATIENT
  Age: 60 Year
  Sex: Male

DRUGS (4)
  1. APROVEL [Suspect]
     Indication: HYPERTENSION
     Route: 048
     Dates: start: 20040902, end: 20040101
  2. ZOCOR [Concomitant]
     Route: 048
  3. KARDEGIC [Concomitant]
     Route: 048
  4. VERAPAMIL [Concomitant]
     Route: 048

REACTIONS (4)
  - ANOREXIA [None]
  - ASTHENIA [None]
  - DIARRHOEA [None]
  - RENAL FAILURE ACUTE [None]
